FAERS Safety Report 16029435 (Version 1)
Quarter: 2019Q1

REPORT INFORMATION
  Report Type: Spontaneous
  Country: US (occurrence: US)
  Receive Date: 20190304
  Receipt Date: 20190304
  Transmission Date: 20190418
  Serious: No
  Sender: FDA-Public Use
  Company Number: US-IMPAX LABORATORIES, LLC-2018-IPXL-01529

PATIENT
  Age: 60 Year
  Sex: Male
  Weight: 76 kg

DRUGS (11)
  1. ENTACAPONE. [Concomitant]
     Active Substance: ENTACAPONE
     Indication: MUSCLE SPASMS
     Dosage: 200 MG, THREE TIMES A DAY (6 AM, 9 AM AND 12 PM)
     Route: 065
  2. RYTARY [Suspect]
     Active Substance: CARBIDOPA\LEVODOPA
     Indication: PARKINSON^S DISEASE
     Dosage: 23.75/95MG, 4 CAPS 6AM, 5 CAPS 9AM+12PM, 4 CAPS (5OR6 PM) AND SOMETIMES 1 CAPS BEFORE GOING TO BED
     Route: 048
  3. KLONOPIN [Concomitant]
     Active Substance: CLONAZEPAM
     Dosage: 2 DF, UNK
     Route: 065
  4. BENZTROPINE. [Concomitant]
     Active Substance: BENZTROPINE
     Indication: MUSCLE RELAXANT THERAPY
     Dosage: 1 MG, AS NEEDED
     Route: 065
  5. CARBIDOPA-LEVODOPA ER [Suspect]
     Active Substance: CARBIDOPA\LEVODOPA
     Indication: PARKINSON^S DISEASE
     Dosage: 50/200 MG, THREE TIMES A DAY (7 AM, 10 AM, 1 PM)
     Route: 065
  6. TRILEPTAL [Concomitant]
     Active Substance: OXCARBAZEPINE
     Indication: MUSCLE SPASMS
     Dosage: 600 MG, TWICE A DAY
     Route: 065
  7. RYTARY [Suspect]
     Active Substance: CARBIDOPA\LEVODOPA
     Dosage: 23.75/95 MG, 4 CAPS (6 AM), 5 CAPS (9 AM, + 12 PM), 6 CAPS (3 PM), AND AFTER 6PM CAPS AS NEEDED
     Route: 048
  8. RYTARY [Suspect]
     Active Substance: CARBIDOPA\LEVODOPA
     Dosage: 23.75/95 MG, 4 CAPS (6 AM), 5 CAPS (9 AM, + 12 PM), 4 CAPS (3 PM), AND AFTER 6 CAPS AS NEEDED
     Route: 048
  9. KLONOPIN [Concomitant]
     Active Substance: CLONAZEPAM
     Indication: SLEEP DISORDER
     Dosage: 0.5 MG AT 6 AM, 0.5 MG AT 9 AM, 1 MG AT 12 NOON, 1 MG AT 3 PM AND 1 OR HALF A PILL AT NIGHT
     Route: 065
  10. AZILECT [Concomitant]
     Active Substance: RASAGILINE MESYLATE
     Indication: PRODUCT USED FOR UNKNOWN INDICATION
     Dosage: 1 MG, ONCE A DAY
     Route: 065
  11. SERTRALINE [Concomitant]
     Active Substance: SERTRALINE HYDROCHLORIDE
     Indication: PRODUCT USED FOR UNKNOWN INDICATION
     Dosage: 200 MG ONCE A DAY
     Route: 065

REACTIONS (10)
  - Weight decreased [Unknown]
  - Fatigue [Unknown]
  - Drug ineffective [Unknown]
  - Sexual activity increased [Not Recovered/Not Resolved]
  - Sleep disorder [Unknown]
  - Therapeutic response shortened [Unknown]
  - Sensitivity of teeth [Not Recovered/Not Resolved]
  - Bowel movement irregularity [Not Recovered/Not Resolved]
  - Pain [Recovering/Resolving]
  - Obsessive-compulsive symptom [Unknown]

NARRATIVE: CASE EVENT DATE: 2018
